FAERS Safety Report 22177245 (Version 1)
Quarter: 2023Q2

REPORT INFORMATION
  Report Type: Spontaneous
  Country: JP (occurrence: JP)
  Receive Date: 20230405
  Receipt Date: 20230405
  Transmission Date: 20230722
  Serious: Yes (Other)
  Sender: FDA-Public Use
  Company Number: JP-Merck Healthcare KGaA-9392221

PATIENT

DRUGS (3)
  1. ERBITUX [Suspect]
     Active Substance: CETUXIMAB
     Indication: Head and neck cancer
     Dosage: UNK UNK, UNKNOWN
     Route: 041
  2. PACLITAXEL [Concomitant]
     Active Substance: PACLITAXEL
     Indication: Head and neck cancer
     Dosage: UNK UNK, UNKNOWN
  3. CARBOPLATIN [Concomitant]
     Active Substance: CARBOPLATIN
     Indication: Head and neck cancer
     Dosage: UNK UNK, UNKNOWN

REACTIONS (1)
  - Fistula inflammation [Recovered/Resolved]
